FAERS Safety Report 8130375-1 (Version None)
Quarter: 2012Q1

REPORT INFORMATION
  Report Type: 
  Country: None (occurrence: None)
  Receive Date: 20120210
  Receipt Date: 20120208
  Transmission Date: 20120608
  Serious: Yes (Death)
  Sender: FDA-Public Use
  Company Number: PHEH2012US000904

PATIENT
  Sex: Male
  Weight: 55.9 kg

DRUGS (2)
  1. EXJADE [Suspect]
     Dosage: 750 MG, QD
     Route: 048
  2. ANTIARRHYTHMICS [Concomitant]

REACTIONS (1)
  - DEATH [None]
